FAERS Safety Report 8438127-X (Version None)
Quarter: 2012Q2

REPORT INFORMATION
  Report Type: 
  Country: None (occurrence: None)
  Receive Date: 20120614
  Receipt Date: 20120608
  Transmission Date: 20120825
  Serious: Yes (Death, Life-Threatening, Hospitalization)
  Sender: FDA-Public Use
  Company Number: ES-ROCHE-1014462

PATIENT
  Sex: Female
  Weight: 66 kg

DRUGS (22)
  1. TOCILIZUMAB [Suspect]
     Route: 042
     Dates: start: 20110609
  2. AMBROXOL [Concomitant]
     Indication: PRODUCT USED FOR UNKNOWN INDICATION
     Route: 048
  3. TOCILIZUMAB [Suspect]
     Route: 042
     Dates: start: 20110805
  4. ASPIRIN [Concomitant]
     Indication: INFLUENZA
     Dates: end: 20111020
  5. METHYLPREDNISOLONE [Concomitant]
     Route: 048
  6. FENTANILO [Concomitant]
     Indication: PRODUCT USED FOR UNKNOWN INDICATION
  7. OTILONIUM BROMIDE [Concomitant]
     Indication: PRODUCT USED FOR UNKNOWN INDICATION
     Route: 048
  8. ATORVASTATIN CALCIUM [Concomitant]
     Indication: PRODUCT USED FOR UNKNOWN INDICATION
     Route: 048
  9. TOCILIZUMAB [Suspect]
     Route: 042
     Dates: start: 20110511
  10. TOCILIZUMAB [Suspect]
     Route: 042
     Dates: start: 20110708
  11. EZETIMIBA [Concomitant]
     Indication: HYPERCHOLESTEROLAEMIA
     Route: 048
     Dates: end: 20111020
  12. BROMURO DE TIOTROPIO [Concomitant]
     Dates: end: 20111020
  13. VALSARTAN [Concomitant]
     Route: 048
  14. ASPIRIN [Concomitant]
     Indication: PRODUCT USED FOR UNKNOWN INDICATION
     Route: 048
  15. FENOFIBRATE [Concomitant]
     Indication: PRODUCT USED FOR UNKNOWN INDICATION
  16. TOCILIZUMAB [Suspect]
     Indication: RHEUMATOID ARTHRITIS
     Route: 042
     Dates: start: 20110216
  17. METILPREDNISOLONA [Concomitant]
     Indication: RHEUMATOID ARTHRITIS
     Route: 048
  18. BROMURO DE TIOTROPIO [Concomitant]
     Indication: PRODUCT USED FOR UNKNOWN INDICATION
     Dosage: FREQUENCY DAILY
  19. ESOMEPRAZOLE [Concomitant]
     Indication: PRODUCT USED FOR UNKNOWN INDICATION
     Route: 048
  20. NSAIDS NOS [Concomitant]
     Indication: PRODUCT USED FOR UNKNOWN INDICATION
     Route: 048
  21. IVABRADINE [Concomitant]
     Indication: PRODUCT USED FOR UNKNOWN INDICATION
     Route: 048
  22. LORAZEPAM [Concomitant]
     Indication: PRODUCT USED FOR UNKNOWN INDICATION
     Route: 048

REACTIONS (4)
  - RESPIRATORY TRACT INFECTION [None]
  - RESPIRATORY FAILURE [None]
  - CARDIAC FAILURE [None]
  - PULMONARY FIBROSIS [None]
